FAERS Safety Report 16556458 (Version 6)
Quarter: 2020Q1

REPORT INFORMATION
  Report Type: Spontaneous
  Country: IT (occurrence: IT)
  Receive Date: 20190710
  Receipt Date: 20200327
  Transmission Date: 20200409
  Serious: Yes (Hospitalization, Other)
  Sender: FDA-Public Use
  Company Number: IT-CELLTRION INC.-2019IT022585

PATIENT

DRUGS (10)
  1. PREDNISONE. [Concomitant]
     Active Substance: PREDNISONE
     Dosage: UNK
  2. PREDNISONE. [Concomitant]
     Active Substance: PREDNISONE
     Dosage: 25 MG QD
     Route: 065
  3. PREDNISONE. [Concomitant]
     Active Substance: PREDNISONE
     Dosage: 5 MG, QD (ADDITIONAL INFO: ADDITIONAL INFO: ACTION TAKEN: DOSE TAPERED FOLLOWED BY DISCONTINUATION.
  4. DAPSONE. [Concomitant]
     Active Substance: DAPSONE
     Dosage: UNK
  5. METHOTREXATE. [Concomitant]
     Active Substance: METHOTREXATE
     Dosage: UNK
  6. PREDNISONE. [Concomitant]
     Active Substance: PREDNISONE
     Dosage: 0.5 MG/KG/DAY (25MG DAY)/ ADDITIONAL INFO: ACTION TAKEN: DOSE TAPERED FOLLOWED BY DISCONTINUATION. L
     Route: 065
  7. RITUXIMAB (UNKNOWN) [Suspect]
     Active Substance: RITUXIMAB
     Indication: PEMPHIGOID
     Dosage: 2 X 1000 MG DOSES (2 WEEKS); ADDITIONAL INFO: ACTION TAKEN: TREATMENT COMPLETED AS SCHEDULED/ TWO DO
     Route: 041
  8. PREDNISONE. [Concomitant]
     Active Substance: PREDNISONE
     Dosage: 5 MG, QD
     Route: 065
  9. CYCLOSPORINE. [Concomitant]
     Active Substance: CYCLOSPORINE
     Dosage: UNK
  10. RITUXIMAB (UNKNOWN) [Suspect]
     Active Substance: RITUXIMAB
     Dosage: 1000 MG, 2/WEEK, TWO DOSES
     Route: 065

REACTIONS (8)
  - Myopathy [Unknown]
  - Intentional product use issue [Unknown]
  - Osteoporosis [Unknown]
  - Treatment failure [Unknown]
  - Off label use [Unknown]
  - Pemphigoid [Recovered/Resolved]
  - Condition aggravated [Recovered/Resolved]
  - Hypertension [Unknown]
